FAERS Safety Report 22250815 (Version 1)
Quarter: 2023Q2

REPORT INFORMATION
  Report Type: Spontaneous
  Country: US (occurrence: None)
  Receive Date: 20230423
  Receipt Date: 20230423
  Transmission Date: 20230721
  Serious: No
  Sender: FDA-Public Use
  Company Number: None

PATIENT
  Sex: Female
  Weight: 92.53 kg

DRUGS (13)
  1. IBRANCE [Suspect]
     Active Substance: PALBOCICLIB
     Indication: Breast cancer female
     Dosage: 125MG DAILY ORAL - 21 DAYS ON, 7 D OFF
     Route: 048
  2. ALBUTEROL [Concomitant]
     Active Substance: ALBUTEROL
  3. ASPIRIN [Concomitant]
     Active Substance: ASPIRIN
  4. CALCIUM [Concomitant]
     Active Substance: CALCIUM
  5. ELIQUIS [Concomitant]
     Active Substance: APIXABAN
  6. LORAZPAM [Concomitant]
  7. MELOXICAM [Concomitant]
     Active Substance: MELOXICAM
  8. METHOCARBAMOL [Concomitant]
     Active Substance: METHOCARBAMOL
  9. PEPCID [Concomitant]
  10. PROCHLOPERAZINE [Concomitant]
  11. SEREVENT DISKUS [Concomitant]
     Active Substance: SALMETEROL XINAFOATE
  12. TRIFLURIDINE [Concomitant]
     Active Substance: TRIFLURIDINE
  13. VITAMIN B12 [Concomitant]
     Active Substance: CYANOCOBALAMIN

REACTIONS (2)
  - Malignant neoplasm progression [None]
  - Metastases to liver [None]
